FAERS Safety Report 23285967 (Version 1)
Quarter: 2023Q4

REPORT INFORMATION
  Report Type: Spontaneous
  Country: TR (occurrence: TR)
  Receive Date: 20231212
  Receipt Date: 20231212
  Transmission Date: 20240109
  Serious: Yes (Other)
  Sender: FDA-Public Use
  Company Number: TR-002147023-NVSC2023TR259281

PATIENT
  Age: 22 Year
  Sex: Female

DRUGS (2)
  1. ILARIS [Suspect]
     Active Substance: CANAKINUMAB
     Indication: Familial amyloidosis
     Dosage: UNK (ONCE IN 15 DAYS) (START DATE: FOR 9 MONTHS)
     Route: 065
  2. ILARIS [Suspect]
     Active Substance: CANAKINUMAB
     Indication: Familial mediterranean fever

REACTIONS (5)
  - Myocardial infarction [Unknown]
  - Pain [Unknown]
  - Crying [Not Recovered/Not Resolved]
  - Product supply issue [Unknown]
  - Off label use [Unknown]
